FAERS Safety Report 10630715 (Version 1)
Quarter: 2014Q4

REPORT INFORMATION
  Report Type: Spontaneous
  Country: US (occurrence: US)
  Receive Date: 20141205
  Receipt Date: 20141205
  Transmission Date: 20150529
  Serious: Yes (Death)
  Sender: FDA-Public Use
  Company Number: US-BRISTOL-MYERS SQUIBB COMPANY-21354667

PATIENT
  Age: 52 Year
  Sex: Male

DRUGS (1)
  1. SPRYCEL [Suspect]
     Active Substance: DASATINIB
     Indication: HAIRY CELL LEUKAEMIA
     Route: 048
     Dates: start: 20140303, end: 20140410

REACTIONS (1)
  - Death [Fatal]

NARRATIVE: CASE EVENT DATE: 20140410
